FAERS Safety Report 8022247-8 (Version None)
Quarter: 2012Q1

REPORT INFORMATION
  Report Type: 
  Country: None (occurrence: None)
  Receive Date: 20120104
  Receipt Date: 20120102
  Transmission Date: 20120608
  Serious: Yes (Life-Threatening, Hospitalization, Other)
  Sender: FDA-Public Use
  Company Number: FR-BRISTOL-MYERS SQUIBB COMPANY-16325276

PATIENT
  Age: 58 Year
  Sex: Female

DRUGS (4)
  1. AVASTIN [Suspect]
     Indication: BREAST CANCER
     Route: 042
     Dates: start: 20100401, end: 20110725
  2. FASLODEX [Suspect]
     Indication: BREAST CANCER
     Route: 042
     Dates: start: 20100401, end: 20110801
  3. GEMZAR [Suspect]
     Indication: BREAST CANCER
     Route: 042
     Dates: start: 20100401, end: 20110815
  4. IRBESARTAN [Suspect]
     Indication: HYPERTENSION
     Route: 048
     Dates: start: 20110201, end: 20110801

REACTIONS (6)
  - RENAL FAILURE ACUTE [None]
  - HYPERTENSIVE CRISIS [None]
  - HYPERTENSION [None]
  - THROMBOTIC MICROANGIOPATHY [None]
  - GENERAL PHYSICAL HEALTH DETERIORATION [None]
  - CITROBACTER SEPSIS [None]
